FAERS Safety Report 4667676-5 (Version None)
Quarter: 2005Q2

REPORT INFORMATION
  Report Type: 
  Country: None (occurrence: None)
  Receive Date: 20050520
  Receipt Date: 20050503
  Transmission Date: 20051028
  Serious: Yes (Death)
  Sender: FDA-Public Use
  Company Number: GSK37996

PATIENT
  Age: 50 Year
  Sex: Male

DRUGS (1)
  1. TUMS [Suspect]
     Indication: ILL-DEFINED DISORDER
     Route: 048

REACTIONS (2)
  - MALAISE [None]
  - OVERDOSE [None]
